FAERS Safety Report 25761647 (Version 2)
Quarter: 2025Q4

REPORT INFORMATION
  Report Type: Spontaneous
  Country: MX (occurrence: MX)
  Receive Date: 20250904
  Receipt Date: 20251001
  Transmission Date: 20260117
  Serious: Yes (Death, Other)
  Sender: BAYER HEALTHCARE PHARMACEUTICALS INC.
  Company Number: MX-BAYER-2025A117234

PATIENT
  Age: 56 Year
  Sex: Female
  Weight: 80 kg

DRUGS (15)
  1. ULTRAVIST [Suspect]
     Active Substance: IOPROMIDE
     Indication: Computerised tomogram breast
     Dosage: 85 ML, ONCE
     Route: 042
     Dates: start: 20250827, end: 20250827
  2. ULTRAVIST [Suspect]
     Active Substance: IOPROMIDE
     Indication: Breast cancer
  3. SPIRONOLACTONE [Concomitant]
     Active Substance: SPIRONOLACTONE
     Indication: Cardiac failure congestive
     Dosage: 25 MG, QD
     Route: 048
     Dates: start: 20181001, end: 20250827
  4. SPIRONOLACTONE [Concomitant]
     Active Substance: SPIRONOLACTONE
     Indication: Hypertension
  5. CANDESARTAN [Concomitant]
     Active Substance: CANDESARTAN
     Indication: Hypertension
     Dosage: 16 MG, ? TABLET QD
     Route: 048
     Dates: end: 20250827
  6. CANDESARTAN [Concomitant]
     Active Substance: CANDESARTAN
     Indication: Cardiac failure
  7. CARVEDILOL [Concomitant]
     Active Substance: CARVEDILOL
     Indication: Cardiac failure
     Dosage: 25 MG, ? TABLET BID
     Route: 048
     Dates: start: 20181001, end: 20250827
  8. CARVEDILOL [Concomitant]
     Active Substance: CARVEDILOL
     Indication: Dilated cardiomyopathy
  9. CARVEDILOL [Concomitant]
     Active Substance: CARVEDILOL
     Indication: Hypertension
  10. DAPAGLIFLOZIN [Concomitant]
     Active Substance: DAPAGLIFLOZIN
     Indication: Cardiac failure
     Dosage: 10 MG, QD
     Route: 048
     Dates: start: 20250715, end: 20250827
  11. DAPAGLIFLOZIN [Concomitant]
     Active Substance: DAPAGLIFLOZIN
     Indication: Metabolic disorder
  12. FOLIC ACID [Concomitant]
     Active Substance: FOLIC ACID
     Indication: Nutritional supplementation
     Dosage: 400 MG, QD
     Route: 048
     Dates: start: 20250221, end: 20250827
  13. CARBAMAZEPINE [Concomitant]
     Active Substance: CARBAMAZEPINE
     Indication: Epilepsy
     Dosage: 400 MG, Q8HR
     Route: 048
     Dates: start: 20140421, end: 20250827
  14. LEVETIRACETAM [Concomitant]
     Active Substance: LEVETIRACETAM
     Indication: Epilepsy
     Dosage: 4 DF, BID
     Route: 048
     Dates: start: 20171114, end: 20250827
  15. FLUVOXAMINE [Concomitant]
     Active Substance: FLUVOXAMINE
     Indication: Depression
     Dosage: 100 MG, QD
     Route: 048
     Dates: start: 20250221, end: 20250827

REACTIONS (2)
  - Cardio-respiratory arrest [Fatal]
  - Syncope [Recovered/Resolved]

NARRATIVE: CASE EVENT DATE: 20250828
